FAERS Safety Report 6141068-4 (Version None)
Quarter: 2009Q2

REPORT INFORMATION
  Report Type: 
  Country: None (occurrence: None)
  Receive Date: 20090402
  Receipt Date: 20090330
  Transmission Date: 20091009
  Serious: Yes (Other)
  Sender: FDA-Public Use
  Company Number: GR-BRISTOL-MYERS SQUIBB COMPANY-14520290

PATIENT
  Age: 60 Year
  Sex: Female

DRUGS (2)
  1. ERBITUX [Suspect]
     Indication: LARYNGEAL CANCER
     Dates: start: 20071101
  2. BEVACIZUMAB [Suspect]
     Indication: LARYNGEAL CANCER
     Dosage: REDUCED TO 7.5MG/KG
     Dates: start: 20071101

REACTIONS (2)
  - ECCHYMOSIS [None]
  - RASH [None]
